FAERS Safety Report 5189546-9 (Version None)
Quarter: 2006Q4

REPORT INFORMATION
  Report Type: 
  Country: None (occurrence: None)
  Receive Date: 20061221
  Receipt Date: 20060329
  Transmission Date: 20070319
  Serious: Yes (Death, Hospitalization, Other)
  Sender: FDA-Public Use
  Company Number: US-ABBOTT-06P-163-0329261-00

PATIENT
  Sex: Female
  Weight: 81.72 kg

DRUGS (6)
  1. HUMIRA [Suspect]
     Indication: RHEUMATOID ARTHRITIS
     Route: 058
     Dates: start: 20040220, end: 20060201
  2. PREDNISONE TAB [Concomitant]
     Indication: RHEUMATOID ARTHRITIS
     Route: 048
  3. METHOTREXATE [Concomitant]
     Indication: RHEUMATOID ARTHRITIS
     Route: 048
  4. FOLIC ACID [Concomitant]
     Indication: RHEUMATOID ARTHRITIS
     Route: 048
  5. NIFEDIPINE [Concomitant]
     Indication: CARDIAC DISORDER
     Route: 048
  6. WARFARIN SODIUM [Concomitant]
     Indication: ANTICOAGULANT THERAPY
     Route: 048

REACTIONS (14)
  - ACUTE RESPIRATORY FAILURE [None]
  - ANAEMIA [None]
  - CARDIO-RESPIRATORY ARREST [None]
  - ELECTROLYTE IMBALANCE [None]
  - FALL [None]
  - GENERAL PHYSICAL HEALTH DETERIORATION [None]
  - HIP FRACTURE [None]
  - ILEUS [None]
  - LOCALISED INFECTION [None]
  - ORAL INTAKE REDUCED [None]
  - PERIPHERAL EMBOLISM [None]
  - PNEUMONIA [None]
  - RENAL FAILURE [None]
  - SEPSIS [None]
